FAERS Safety Report 4313023-8 (Version None)
Quarter: 2004Q1

REPORT INFORMATION
  Report Type: 
  Country: None (occurrence: None)
  Receive Date: 20040304
  Receipt Date: 20040224
  Transmission Date: 20041129
  Serious: Yes (Hospitalization)
  Sender: FDA-Public Use
  Company Number: 2004-BP-01343RO

PATIENT
  Age: 17 Month
  Sex: Female
  Weight: 10 kg

DRUGS (4)
  1. AZATHIOPRINE [Suspect]
     Dosage: 100 MG X 1 DOSE (50 MG, ONCE), PO
     Route: 048
     Dates: start: 20040222, end: 20040222
  2. ROCEPHIN [Concomitant]
  3. SOLU-MEDROL (METHYLPRENISOLONE SODIUM SUCCINATE) [Concomitant]
  4. ALBUTEROL [Concomitant]

REACTIONS (1)
  - MEDICATION ERROR [None]
